FAERS Safety Report 9272706 (Version 1)
Quarter: 2013Q2

REPORT INFORMATION
  Report Type: Spontaneous
  Country: US (occurrence: US)
  Receive Date: 20130506
  Receipt Date: 20130506
  Transmission Date: 20140414
  Serious: No
  Sender: FDA-Public Use
  Company Number: US-ASTRAZENECA-2012SE60779

PATIENT
  Age: 69 Year
  Sex: Female

DRUGS (3)
  1. PRILOSEC OTC [Suspect]
     Indication: OESOPHAGEAL DISORDER
     Route: 048
     Dates: start: 20120725
  2. PRILOSEC OTC [Suspect]
     Indication: OESOPHAGEAL DISORDER
     Route: 048
  3. CRESTOR [Concomitant]
     Indication: BLOOD CHOLESTEROL ABNORMAL
     Route: 048

REACTIONS (4)
  - Toothache [Unknown]
  - Gingival pain [Unknown]
  - Headache [Unknown]
  - Musculoskeletal discomfort [Unknown]
